FAERS Safety Report 8577574 (Version 2)
Quarter: 2012Q4

REPORT INFORMATION
  Report Type: 
  Country: US (occurrence: US)
  Receive Date: 20120524
  Receipt Date: 20121003
  Transmission Date: 20130627
  Serious: Yes (Hospitalization)
  Sender: FDA-Public Use
  Company Number: US-BAYER-2012-050252

PATIENT
  Age: 37 Year
  Sex: Female

DRUGS (9)
  1. YAZ [Suspect]
     Indication: ACNE
     Dosage: UNK
     Dates: start: 201004
  2. YAZ [Suspect]
     Indication: HIRSUTISM
  3. YASMIN [Suspect]
     Dosage: UNK
     Dates: start: 201004
  4. OCELLA [Suspect]
     Dosage: UNK
     Dates: start: 201004
  5. BUSPAR [Concomitant]
     Dosage: 5 mg, daily
     Route: 048
     Dates: start: 20100513
  6. METFORMIN [Concomitant]
     Indication: POLYCYSTIC OVARIES
     Dosage: 500 mg, BID
     Route: 048
     Dates: start: 20100409, end: 20100510
  7. LAMICTAL [Concomitant]
     Dosage: 150 mg, BID
     Route: 048
     Dates: start: 20100513
  8. ORTHO TRI CYCLEN [Concomitant]
  9. TRINESSA [Concomitant]

REACTIONS (6)
  - Pulmonary embolism [Recovered/Resolved]
  - Deep vein thrombosis [Recovered/Resolved]
  - Injury [Recovered/Resolved]
  - Pain [None]
  - Anxiety [None]
  - Fear [None]
